FAERS Safety Report 9387656 (Version 1)
Quarter: 2013Q3

REPORT INFORMATION
  Report Type: Spontaneous
  Country: TW (occurrence: TW)
  Receive Date: 20130708
  Receipt Date: 20130708
  Transmission Date: 20140515
  Serious: Yes (Hospitalization)
  Sender: FDA-Public Use
  Company Number: TW-SANOFI-AVENTIS-2013SA064285

PATIENT
  Age: 67 Year
  Sex: Female

DRUGS (8)
  1. OXALIPLATIN [Suspect]
     Indication: RECTAL CANCER METASTATIC
     Dosage: 12 COURSES
     Route: 042
     Dates: start: 2007
  2. OXALIPLATIN [Suspect]
     Indication: RECTAL CANCER METASTATIC
     Dosage: 6 COURSES
     Route: 042
     Dates: start: 2010
  3. OXALIPLATIN [Suspect]
     Indication: RECTAL CANCER METASTATIC
     Dosage: INFUSION
     Route: 065
     Dates: start: 201104
  4. FLUOROURACIL [Concomitant]
     Indication: RECTAL CANCER METASTATIC
     Route: 042
  5. FLUOROURACIL [Concomitant]
     Indication: RECTAL CANCER METASTATIC
     Route: 042
  6. LEUCOVORIN [Concomitant]
     Indication: RECTAL CANCER METASTATIC
     Route: 042
  7. LEUCOVORIN [Concomitant]
     Indication: RECTAL CANCER METASTATIC
     Route: 042
  8. THERAPEUTIC RADIOPHARMACEUTICALS [Concomitant]
     Indication: RECTAL CANCER METASTATIC

REACTIONS (12)
  - Torsade de pointes [Recovered/Resolved]
  - Electrocardiogram QT prolonged [Recovered/Resolved]
  - Ventricular tachycardia [Recovered/Resolved]
  - Depressed level of consciousness [Recovered/Resolved]
  - Arteriospasm coronary [Recovered/Resolved]
  - Myocardial reperfusion injury [Recovered/Resolved]
  - Electrocardiogram ST segment abnormal [Recovered/Resolved]
  - Throat tightness [Recovered/Resolved]
  - Cold sweat [Recovered/Resolved]
  - Hypotension [Recovered/Resolved]
  - Mitral valve incompetence [Recovered/Resolved]
  - Ventricular hypokinesia [Recovered/Resolved]
